FAERS Safety Report 8666323 (Version 4)
Quarter: 2013Q3

REPORT INFORMATION
  Report Type: Spontaneous
  Country: US (occurrence: US)
  Receive Date: 20120716
  Receipt Date: 20130911
  Transmission Date: 20140515
  Serious: Yes (Other)
  Sender: FDA-Public Use
  Company Number: US-ROCHE-1056158

PATIENT
  Age: 14 Year
  Sex: Male
  Weight: 79.45 kg

DRUGS (3)
  1. ACCUTANE [Suspect]
     Indication: ACNE
     Route: 048
     Dates: start: 20000825
  2. ACCUTANE [Suspect]
     Route: 048
     Dates: start: 200009, end: 200012
  3. ACCUTANE [Suspect]
     Route: 048
     Dates: end: 200101

REACTIONS (8)
  - Colitis ulcerative [Unknown]
  - Anxiety [Unknown]
  - Proctitis ulcerative [Unknown]
  - Colitis ulcerative [Unknown]
  - Depression [Unknown]
  - Dry skin [Unknown]
  - Lip dry [Unknown]
  - Arthralgia [Unknown]
